FAERS Safety Report 21547788 (Version 1)
Quarter: 2022Q4

REPORT INFORMATION
  Report Type: Spontaneous
  Country: US (occurrence: None)
  Receive Date: 20221102
  Receipt Date: 20221102
  Transmission Date: 20230112
  Serious: No
  Sender: FDA-Public Use
  Company Number: None

PATIENT
  Age: 35 Year
  Sex: Female

DRUGS (1)
  1. SKYRIZI [Suspect]
     Active Substance: RISANKIZUMAB-RZAA
     Indication: Psoriasis
     Dosage: OTHER FREQUENCY : Q 12WKS;?
     Route: 058
     Dates: start: 202204

REACTIONS (6)
  - Device defective [None]
  - Needle issue [None]
  - Device malfunction [None]
  - Therapy interrupted [None]
  - Product distribution issue [None]
  - Insurance issue [None]

NARRATIVE: CASE EVENT DATE: 20221101
